FAERS Safety Report 5114695-0 (Version None)
Quarter: 2006Q3

REPORT INFORMATION
  Report Type: 
  Country: None (occurrence: None)
  Receive Date: 20060926
  Receipt Date: 20060914
  Transmission Date: 20061208
  Serious: Yes (Death)
  Sender: FDA-Public Use
  Company Number: JP-JNJFOC-20050706278

PATIENT
  Sex: Male
  Weight: 42 kg

DRUGS (20)
  1. REMICADE [Suspect]
     Indication: CROHN'S DISEASE
     Route: 042
  2. SANDIMMUNE [Suspect]
     Indication: CROHN'S DISEASE
     Route: 048
  3. PREDONINE [Suspect]
     Route: 048
  4. PREDONINE [Suspect]
     Indication: CROHN'S DISEASE
     Dosage: DOSE REDUCED FROM 14 MG
     Route: 048
  5. PREDNISOLONE ACETATE [Suspect]
     Indication: CROHN'S DISEASE
     Dosage: DOSE REDUCED FROM 14 MG
     Route: 042
  6. PENTASA [Concomitant]
     Indication: CROHN'S DISEASE
     Route: 048
  7. FOLIAMIN [Concomitant]
     Indication: ANAEMIA MACROCYTIC
     Route: 048
  8. ALLOZYM [Concomitant]
     Indication: HYPERURICAEMIA
     Route: 048
  9. TAKEPRON [Concomitant]
     Indication: GASTRIC ULCER
     Route: 048
  10. ALFAROL [Concomitant]
     Indication: RENAL FAILURE CHRONIC
     Route: 048
  11. CLOSTRIDIUM BUTYRICUM [Concomitant]
     Dosage: DOSE 3DF
     Route: 048
  12. SELBEX [Concomitant]
     Indication: GASTRITIS
     Route: 048
  13. HICEE [Concomitant]
     Indication: HYPOVITAMINOSIS
     Route: 048
  14. LASIX [Concomitant]
     Indication: OLIGURIA
     Route: 048
  15. DAI-KENCHU-TO [Concomitant]
     Indication: ILEUS
     Dosage: DOSE 6DF
     Route: 048
  16. AMOBAN [Concomitant]
     Indication: INSOMNIA
     Route: 048
  17. MIYA BM [Concomitant]
     Dosage: 3DF DAILY
     Route: 048
  18. ADONA [Concomitant]
  19. TRANSAMIN [Concomitant]
  20. OMEPRAZOLE [Concomitant]

REACTIONS (6)
  - ABDOMINAL DISTENSION [None]
  - CROHN'S DISEASE [None]
  - ILEAL ULCER [None]
  - ILEUS [None]
  - UPPER GASTROINTESTINAL HAEMORRHAGE [None]
  - VOMITING [None]
